FAERS Safety Report 18098902 (Version 1)
Quarter: 2020Q3

REPORT INFORMATION
  Report Type: Spontaneous
  Country: US (occurrence: US)
  Receive Date: 20200731
  Receipt Date: 20200731
  Transmission Date: 20201103
  Serious: Yes (Other)
  Sender: FDA-Public Use
  Company Number: US-PFIZER INC-2020289312

PATIENT
  Age: 54 Year
  Sex: Female

DRUGS (4)
  1. CHANTIX [Suspect]
     Active Substance: VARENICLINE TARTRATE
     Dosage: ON SEVENTH DAY STARTED TAKING 1MG TWICE PER DAY
     Dates: start: 2016
  2. CHANTIX [Suspect]
     Active Substance: VARENICLINE TARTRATE
     Dosage: NEXT FOUR DAYS TOOK 0.5MG TWICE PER DAY
     Dates: start: 2016
  3. CHANTIX [Suspect]
     Active Substance: VARENICLINE TARTRATE
     Dosage: TOOK ONE PILL
     Route: 048
     Dates: start: 20200729
  4. CHANTIX [Suspect]
     Active Substance: VARENICLINE TARTRATE
     Indication: EX-TOBACCO USER
     Dosage: FIRST THREE DAY TOOK 0.5MG ONCE PER DAY
     Dates: start: 2016

REACTIONS (2)
  - Intentional product use issue [Unknown]
  - Autoimmune disorder [Unknown]

NARRATIVE: CASE EVENT DATE: 20200729
